FAERS Safety Report 4845186-X (Version None)
Quarter: 2005Q4

REPORT INFORMATION
  Report Type: 
  Country: None (occurrence: None)
  Receive Date: 20051205
  Receipt Date: 20051128
  Transmission Date: 20060501
  Serious: Yes (Death, Life-Threatening)
  Sender: FDA-Public Use
  Company Number: AU-BRISTOL-MYERS SQUIBB COMPANY-13202114

PATIENT
  Age: 85 Year
  Sex: Male

DRUGS (4)
  1. IRBESARTAN [Suspect]
     Route: 048
     Dates: start: 20040712, end: 20041117
  2. OMEPRAZOLE [Suspect]
     Route: 048
     Dates: start: 20020731, end: 20041211
  3. SIMVASTATIN [Concomitant]
     Route: 048
     Dates: start: 19971004, end: 20050211
  4. MODURETIC TABS [Concomitant]
     Route: 048
     Dates: start: 20041206

REACTIONS (2)
  - GRAVITATIONAL OEDEMA [None]
  - NEPHRITIS INTERSTITIAL [None]
